FAERS Safety Report 24585876 (Version 2)
Quarter: 2025Q3

REPORT INFORMATION
  Report Type: Spontaneous
  Country: US (occurrence: US)
  Receive Date: 20241106
  Receipt Date: 20250803
  Transmission Date: 20251021
  Serious: Yes (Life-Threatening, Other)
  Sender: ALEXION PHARMACEUTICALS
  Company Number: US-AstraZeneca-CH-00710874A

PATIENT
  Age: 76 Year
  Sex: Female
  Weight: 90.264 kg

DRUGS (3)
  1. BRILINTA [Suspect]
     Active Substance: TICAGRELOR
  2. CRESTOR [Suspect]
     Active Substance: ROSUVASTATIN CALCIUM
  3. TAFAMIDIS [Suspect]
     Active Substance: TAFAMIDIS
     Route: 065

REACTIONS (4)
  - Cardiac failure [Unknown]
  - Cardiac amyloidosis [Unknown]
  - Abdominal discomfort [Unknown]
  - Dizziness [Unknown]
